FAERS Safety Report 4499455-6 (Version None)
Quarter: 2004Q4

REPORT INFORMATION
  Report Type: 
  Country: None (occurrence: None)
  Receive Date: 20040928
  Receipt Date: 20040702
  Transmission Date: 20050328
  Serious: No
  Sender: FDA-Public Use
  Company Number: 04P-163-0265539-00

PATIENT
  Sex: Female

DRUGS (5)
  1. HUMIRA [Suspect]
     Indication: RHEUMATOID ARTHRITIS
     Dosage: 40 MG 1 IN 2 WK SUBCUTANEOUS
     Route: 058
     Dates: start: 20040512, end: 20040609
  2. FOLIC ACID [Concomitant]
  3. CALCIUM [Concomitant]
  4. ERGOCALCIFEROL [Concomitant]
  5. CELECOXIB [Concomitant]

REACTIONS (2)
  - BRONCHITIS [None]
  - SINUSITIS [None]
